FAERS Safety Report 16845861 (Version 1)
Quarter: 2019Q3

REPORT INFORMATION
  Report Type: Spontaneous
  Country: US (occurrence: US)
  Receive Date: 20190924
  Receipt Date: 20190924
  Transmission Date: 20191005
  Serious: No
  Sender: FDA-Public Use
  Company Number: US-CATALYST PHARMACEUTICALS, INC-2019CAT00241

PATIENT
  Age: 57 Year
  Sex: Female

DRUGS (6)
  1. AMBIEN [Concomitant]
     Active Substance: ZOLPIDEM TARTRATE
  2. IVIG [Concomitant]
     Active Substance: HUMAN IMMUNOGLOBULIN G
     Dosage: UNK, EVERY 4 WEEKS
  3. FIRDAPSE [Suspect]
     Active Substance: AMIFAMPRIDINE
     Dosage: 5 MG, 2X/DAY
     Route: 048
     Dates: start: 20190701
  4. FIRDAPSE [Suspect]
     Active Substance: AMIFAMPRIDINE
     Dosage: 10 MG, 1X/DAY IN THE MORNING
     Route: 048
     Dates: start: 20190701
  5. FIRDAPSE [Suspect]
     Active Substance: AMIFAMPRIDINE
     Indication: MYASTHENIC SYNDROME
     Dosage: 5 MG, 3X/DAY
     Route: 048
     Dates: start: 20190628, end: 20190630
  6. MESTINON [Concomitant]
     Active Substance: PYRIDOSTIGMINE BROMIDE
     Dosage: 60 MG, 3X/DAY

REACTIONS (1)
  - Nausea [Not Recovered/Not Resolved]

NARRATIVE: CASE EVENT DATE: 20190628
